FAERS Safety Report 16211994 (Version 1)
Quarter: 2019Q2

REPORT INFORMATION
  Report Type: Spontaneous
  Country: US (occurrence: US)
  Receive Date: 20190315
  Receipt Date: 20190315
  Transmission Date: 20190711
  Serious: No
  Sender: FDA-Public Use
  Company Number: None

PATIENT
  Age: 89 Year
  Sex: Female

DRUGS (1)
  1. VERZENIO [Suspect]
     Active Substance: ABEMACICLIB
     Route: 048
     Dates: start: 20190219

REACTIONS (5)
  - Decreased appetite [None]
  - Nausea [None]
  - Dehydration [None]
  - Dysgeusia [None]
  - Diarrhoea [None]

NARRATIVE: CASE EVENT DATE: 20190315
